FAERS Safety Report 13663657 (Version 9)
Quarter: 2018Q2

REPORT INFORMATION
  Report Type: Spontaneous
  Country: US (occurrence: US)
  Receive Date: 20170619
  Receipt Date: 20180504
  Transmission Date: 20180711
  Serious: Yes (Congenital Anomaly, Other)
  Sender: FDA-Public Use
  Company Number: PHEH2017US018505

PATIENT
  Sex: Female

DRUGS (2)
  1. ZOFRAN [Suspect]
     Active Substance: ONDANSETRON HYDROCHLORIDE
     Indication: FOETAL EXPOSURE DURING PREGNANCY
     Route: 064
  2. ZOFRAN [Suspect]
     Active Substance: ONDANSETRON HYDROCHLORIDE
     Indication: FOETAL EXPOSURE DURING PREGNANCY
     Route: 064

REACTIONS (33)
  - Congenital cystic kidney disease [Unknown]
  - Premature baby [Unknown]
  - Developmental delay [Unknown]
  - Nasal turbinate hypertrophy [Unknown]
  - Dyspnoea [Unknown]
  - Rhinorrhoea [Unknown]
  - Hyperkalaemia [Unknown]
  - Injury [Unknown]
  - Dysmenorrhoea [Unknown]
  - Otitis media [Unknown]
  - Chronic tonsillitis [Unknown]
  - Skin papilloma [Unknown]
  - Radius fracture [Unknown]
  - Nasal congestion [Unknown]
  - Stomach mass [Unknown]
  - Nasal septum deviation [Unknown]
  - Foetal exposure during pregnancy [Unknown]
  - Viral pharyngitis [Unknown]
  - Fall [Unknown]
  - Tongue disorder [Unknown]
  - Nasopharyngitis [Unknown]
  - Nasal obstruction [Unknown]
  - Patellofemoral pain syndrome [Unknown]
  - Pyrexia [Unknown]
  - Cardiovascular disorder [Unknown]
  - Lymphangioma [Unknown]
  - Rhinitis allergic [Unknown]
  - Neonatal respiratory distress [Unknown]
  - Upper respiratory tract infection [Unknown]
  - Sinusitis [Unknown]
  - Conversion disorder [Unknown]
  - Oropharyngeal pain [Unknown]
  - Rhinitis [Unknown]
